FAERS Safety Report 5280421-8 (Version None)
Quarter: 2007Q1

REPORT INFORMATION
  Report Type: 
  Country: None (occurrence: None)
  Receive Date: 20061229
  Receipt Date: 20060831
  Transmission Date: 20070707
  Serious: Yes (Other)
  Sender: FDA-Public Use
  Company Number: 2006UW15364

PATIENT
  Age: 67 Year
  Sex: Female
  Weight: 83.914 kg

DRUGS (16)
  1. CRESTOR [Suspect]
     Indication: BLOOD CHOLESTEROL INCREASED
     Dosage: 5 MG PO
     Route: 048
     Dates: start: 20060701, end: 20060801
  2. THEOPHYLLINE [Concomitant]
  3. CARTIA XT [Concomitant]
  4. COZAAR [Concomitant]
  5. BUSPAR [Concomitant]
  6. XANAX [Concomitant]
  7. ATENOLOL [Concomitant]
  8. SINGULAIR [Concomitant]
  9. NEXIUM ORAL [Concomitant]
  10. IMDUR [Concomitant]
  11. DUONES [Concomitant]
  12. TRIPLENEB [Concomitant]
  13. VITAMINS [Concomitant]
  14. FOSAMAX [Concomitant]
  15. ALBUTEROL [Concomitant]
  16. PULMICORT [Concomitant]

REACTIONS (4)
  - ASTHENIA [None]
  - BACK PAIN [None]
  - DIARRHOEA [None]
  - TREMOR [None]
